FAERS Safety Report 5648138-5 (Version None)
Quarter: 2008Q1

REPORT INFORMATION
  Report Type: 
  Country: None (occurrence: None)
  Receive Date: 20080229
  Receipt Date: 20080214
  Transmission Date: 20080703
  Serious: Yes (Other)
  Sender: FDA-Public Use
  Company Number: 2008000345

PATIENT
  Age: 71 Year
  Sex: Female

DRUGS (7)
  1. ERLOTINIB (ERLOTINIB HCL) (TABLET) (ERLOTINIB HCL) [Suspect]
     Indication: NON-SMALL CELL LUNG CANCER
     Dosage: (150 MG, QD), ORAL
     Route: 048
     Dates: start: 20071221, end: 20080111
  2. PICIBANIL (STREPTOCOCCUS PYOGENES) [Suspect]
     Dates: start: 20080115
  3. UNASYN [Suspect]
     Dates: start: 20080118
  4. BISOPROLOL FUMARATE [Suspect]
  5. HALCION [Concomitant]
  6. ENTERONON-R [Concomitant]
  7. SUNRYTHM (PILSICAINIDE HYDROCHLORIDE) [Concomitant]

REACTIONS (4)
  - ANAPHYLACTIC SHOCK [None]
  - DIARRHOEA [None]
  - LOSS OF CONSCIOUSNESS [None]
  - PLEURAL EFFUSION [None]
